FAERS Safety Report 5218425-3 (Version None)
Quarter: 2007Q1

REPORT INFORMATION
  Report Type: 
  Country: None (occurrence: None)
  Receive Date: 20070124
  Receipt Date: 20070112
  Transmission Date: 20070707
  Serious: Yes (Other)
  Sender: FDA-Public Use
  Company Number: FI-PFIZER INC-2007004579

PATIENT
  Age: 71 Year
  Sex: Male
  Weight: 75 kg

DRUGS (4)
  1. VIAGRA [Suspect]
     Route: 048
  2. TAMSULOSIN HCL [Suspect]
     Route: 048
  3. LATANOPROST [Concomitant]
     Route: 047
  4. TIMOLOL MALEATE [Concomitant]
     Route: 047

REACTIONS (2)
  - HYPOTENSION [None]
  - VASCULAR RESISTANCE SYSTEMIC DECREASED [None]
